FAERS Safety Report 23942693 (Version 2)
Quarter: 2024Q3

REPORT INFORMATION
  Report Type: Report from Study
  Country: SK (occurrence: SK)
  Receive Date: 20240605
  Receipt Date: 20240723
  Transmission Date: 20241017
  Serious: Yes (Other)
  Sender: ROCHE
  Company Number: SK-ROCHE-3577109

PATIENT

DRUGS (16)
  1. RITUXIMAB [Suspect]
     Active Substance: RITUXIMAB
     Indication: Central nervous system lymphoma
     Dosage: (D0, D5) (TOTAL 2 CYCLES) IN MATRIX PROTOCOL
     Route: 042
  2. RITUXIMAB [Suspect]
     Active Substance: RITUXIMAB
     Indication: Central nervous system lymphoma
     Dosage: DE ANGELIS PROTOCOL
     Route: 065
  3. METHOTREXATE [Suspect]
     Active Substance: METHOTREXATE
     Indication: Central nervous system lymphoma
     Dosage: 3.5 G/M^2 (D1) (TOTAL 2 CYCLES) IN MATRIX PROTOCOL
     Route: 065
  4. METHOTREXATE [Suspect]
     Active Substance: METHOTREXATE
     Dosage: DE ANGELIS PROTOCOL
     Route: 065
  5. METHOTREXATE [Suspect]
     Active Substance: METHOTREXATE
     Dosage: CHOD/BVAM PROTOCOL
     Route: 065
  6. CYTARABINE [Suspect]
     Active Substance: CYTARABINE
     Indication: Central nervous system lymphoma
     Dosage: 2 TIMES 2 G/M^2 (D2-3) (TOTAL 2 CYCLES)
     Route: 065
  7. CYTARABINE [Suspect]
     Active Substance: CYTARABINE
     Dosage: CHOD/BVAM PROTOCOL
     Route: 065
  8. THIOTEPA [Suspect]
     Active Substance: THIOTEPA
     Indication: Central nervous system lymphoma
     Dosage: D4 (TOTAL 2 CYCLES)
     Route: 065
  9. THIOTEPA [Suspect]
     Active Substance: THIOTEPA
     Dosage: (D-5-(-4)
     Route: 065
  10. VINCRISTINE [Suspect]
     Active Substance: VINCRISTINE
     Indication: Central nervous system lymphoma
     Dosage: DE ANGELIS PROTOCOL
     Route: 065
  11. VINCRISTINE [Suspect]
     Active Substance: VINCRISTINE
     Dosage: CHOD/BVAM PROTOCOL
     Route: 065
  12. PROCARBAZINE [Suspect]
     Active Substance: PROCARBAZINE
     Indication: Central nervous system lymphoma
     Dosage: DE ANGELIS PROTOCOL
     Route: 065
  13. CYCLOPHOSPHAMIDE [Suspect]
     Active Substance: CYCLOPHOSPHAMIDE
     Indication: Central nervous system lymphoma
     Dosage: CHOD/BVAM PROTOCOL
     Route: 065
  14. DOXORUBICIN [Suspect]
     Active Substance: DOXORUBICIN
     Indication: Central nervous system lymphoma
     Dosage: CHOD/BVAM PROTOCOL
     Route: 065
  15. DEXAMETHASONE [Suspect]
     Active Substance: DEXAMETHASONE
     Indication: Central nervous system lymphoma
     Dosage: CHOD/BVAM PROTOCOL
     Route: 065
  16. CARMUSTINE [Suspect]
     Active Substance: CARMUSTINE
     Indication: Central nervous system lymphoma
     Dosage: D-6
     Route: 065

REACTIONS (7)
  - Nephropathy toxic [Unknown]
  - Febrile neutropenia [Unknown]
  - Thrombocytopenia [Unknown]
  - Anaemia [Unknown]
  - Hepatotoxicity [Unknown]
  - Mucosal inflammation [Unknown]
  - Off label use [Unknown]
